FAERS Safety Report 8343537-5 (Version None)
Quarter: 2012Q2

REPORT INFORMATION
  Report Type: 
  Country: None (occurrence: None)
  Receive Date: 20120508
  Receipt Date: 20120425
  Transmission Date: 20120825
  Serious: Yes (Other)
  Sender: FDA-Public Use
  Company Number: GB-PFIZER INC-2012065492

PATIENT
  Age: 71 Year
  Sex: Female

DRUGS (16)
  1. PIPERACILLIN AND TAZOBACTAM [Suspect]
     Dosage: 4.5 G, UNK
     Route: 042
     Dates: start: 20120221, end: 20120222
  2. BISOPROLOL [Concomitant]
  3. MAGNESIUM SULFATE [Concomitant]
     Dosage: 25 MMOL
     Route: 042
     Dates: start: 20120128, end: 20120128
  4. TEICOPLANIN [Concomitant]
     Dosage: 800 MG, 1X/DAY
     Route: 042
     Dates: start: 20120109, end: 20120110
  5. NICORANDIL [Concomitant]
  6. FUROSEMIDE [Concomitant]
     Dosage: UNK
     Dates: end: 20120209
  7. MAGNESIUM SULFATE [Concomitant]
     Dosage: 25 MMOL
     Route: 042
     Dates: start: 20120111, end: 20120111
  8. NITROFURANTOIN [Concomitant]
     Indication: URINARY TRACT INFECTION
  9. CIPROFLOXACIN HCL [Suspect]
     Dosage: 600 MG, UNK
     Route: 042
     Dates: start: 20120111, end: 20120206
  10. ACETYLSALICYLIC ACID [Concomitant]
  11. ATORVASTATIN [Concomitant]
  12. MAGNASPART [Suspect]
     Indication: HYPOMAGNESAEMIA
     Dosage: 10 MMOL, 1X/DAY
     Route: 048
     Dates: start: 20120113, end: 20120209
  13. LANSOPRAZOLE [Concomitant]
  14. CIPROFLOXACIN HCL [Suspect]
     Dosage: 750 MG, 2X/DAY
     Route: 048
     Dates: start: 20120110, end: 20120211
  15. FERROUS SULFATE TAB [Concomitant]
  16. MAGNESIUM SULFATE [Concomitant]
     Indication: HYPOMAGNESAEMIA
     Dosage: 25 MMOL, UNK
     Route: 042
     Dates: start: 20120107, end: 20120107

REACTIONS (6)
  - RASH ERYTHEMATOUS [None]
  - PRURITUS [None]
  - PRODUCT CONTAMINATION MICROBIAL [None]
  - PARAESTHESIA [None]
  - RASH MACULO-PAPULAR [None]
  - SKIN WARM [None]
